FAERS Safety Report 4486696-7 (Version None)
Quarter: 2004Q4

REPORT INFORMATION
  Report Type: 
  Country: None (occurrence: None)
  Receive Date: 20041021
  Receipt Date: 20041014
  Transmission Date: 20050328
  Serious: Yes (Hospitalization, Other)
  Sender: FDA-Public Use
  Company Number: 2004-09-1892

PATIENT
  Age: 43 Year
  Sex: Female
  Weight: 60.782 kg

DRUGS (4)
  1. CLARINEX [Suspect]
     Indication: HYPERSENSITIVITY
     Dosage: 1 TAB DAILY ORAL
     Route: 048
     Dates: start: 20040922, end: 20040924
  2. DOMPERIDONE TABLETS [Concomitant]
  3. SANDOMIGRAN DS TABLETS [Concomitant]
  4. BECLOMETHASONE NASAL AEROSOL [Concomitant]

REACTIONS (6)
  - ASTHENIA [None]
  - DIZZINESS [None]
  - FEELING ABNORMAL [None]
  - GRAND MAL CONVULSION [None]
  - HEAD DISCOMFORT [None]
  - NAUSEA [None]
